FAERS Safety Report 7622755-5 (Version None)
Quarter: 2011Q3

REPORT INFORMATION
  Report Type: 
  Country: None (occurrence: None)
  Receive Date: 20110719
  Receipt Date: 20110719
  Transmission Date: 20111222
  Serious: No
  Sender: FDA-Public Use
  Company Number: None

PATIENT
  Age: 72 Year
  Sex: Female
  Weight: 59.8748 kg

DRUGS (1)
  1. LEVAQUIN [Suspect]
     Indication: BRONCHITIS BACTERIAL
     Dosage: 1 DAILY - QTY 10
     Dates: start: 20110314, end: 20110324

REACTIONS (7)
  - GAIT DISTURBANCE [None]
  - OSTEOARTHRITIS [None]
  - OEDEMA PERIPHERAL [None]
  - MUSCLE SPASMS [None]
  - DRUG INEFFECTIVE [None]
  - RHEUMATOID ARTHRITIS [None]
  - ASTHENIA [None]
